FAERS Safety Report 13581198 (Version 1)
Quarter: 2017Q2

REPORT INFORMATION
  Report Type: Spontaneous
  Country: US (occurrence: US)
  Receive Date: 20170525
  Receipt Date: 20170525
  Transmission Date: 20170830
  Serious: Yes (Disabling)
  Sender: FDA-Public Use
  Company Number: None

PATIENT
  Age: 72 Year
  Sex: Male
  Weight: 80.55 kg

DRUGS (1)
  1. REPATHA [Suspect]
     Active Substance: EVOLOCUMAB
     Indication: BLOOD CHOLESTEROL ABNORMAL
     Dosage: ?          OTHER FREQUENCY:TWICE MONTHLY;?
     Route: 030
     Dates: start: 20170512, end: 20170522

REACTIONS (2)
  - Influenza [None]
  - Myalgia [None]

NARRATIVE: CASE EVENT DATE: 20170519
